FAERS Safety Report 9957118 (Version 1)
Quarter: 2014Q1

REPORT INFORMATION
  Report Type: Report from Study
  Country: US (occurrence: US)
  Receive Date: 20140304
  Receipt Date: 20140304
  Transmission Date: 20141002
  Serious: No
  Sender: FDA-Public Use
  Company Number: US-ABBVIE-13P-163-1099667-00

PATIENT
  Age: 61 Year
  Sex: Male
  Weight: 102.6 kg

DRUGS (9)
  1. HUMIRA [Suspect]
     Indication: COLITIS ULCERATIVE
     Route: 058
     Dates: start: 20130213, end: 20130213
  2. HUMIRA [Suspect]
     Route: 058
     Dates: start: 20130227, end: 20130227
  3. HUMIRA [Suspect]
     Route: 058
     Dates: start: 20130313
  4. PREDNISONE [Suspect]
     Indication: COLITIS ULCERATIVE
     Route: 048
     Dates: end: 201305
  5. PREDNISONE [Suspect]
     Route: 048
     Dates: start: 201305
  6. BABY ASPIRIN [Suspect]
     Indication: ISCHAEMIC HEART DISEASE PROPHYLAXIS
     Route: 048
     Dates: start: 201301
  7. VICODIN [Concomitant]
     Indication: PAIN
  8. UNKNOWN MEDICATION [Concomitant]
     Indication: HYPERTENSION
  9. UNKNOWN STERIOD SUPPOSITORY [Concomitant]
     Indication: COLITIS ULCERATIVE
     Dosage: PRN

REACTIONS (2)
  - Erythema [Recovering/Resolving]
  - Contusion [Not Recovered/Not Resolved]
